FAERS Safety Report 10041065 (Version 1)
Quarter: 2014Q1

REPORT INFORMATION
  Report Type: Spontaneous
  Country: US (occurrence: US)
  Receive Date: 20140327
  Receipt Date: 20140327
  Transmission Date: 20141002
  Serious: Yes (Other)
  Sender: FDA-Public Use
  Company Number: US-PFIZER INC-2014085419

PATIENT
  Age: 52 Year
  Sex: Male
  Weight: 71.66 kg

DRUGS (1)
  1. DILANTIN [Suspect]
     Dosage: 100 MG, THREE TABLETS IN MORNING AND TWO TABLETS IN NIGHT
     Route: 048

REACTIONS (3)
  - Convulsion [Unknown]
  - Mental disorder [Unknown]
  - Nervousness [Unknown]
